FAERS Safety Report 12471545 (Version 1)
Quarter: 2016Q2

REPORT INFORMATION
  Report Type: Spontaneous
  Country: US (occurrence: US)
  Receive Date: 20160616
  Receipt Date: 20160616
  Transmission Date: 20160815
  Serious: Yes (Other)
  Sender: FDA-Public Use
  Company Number: US-TEVA-666658USA

PATIENT
  Age: 47 Year
  Sex: Female

DRUGS (2)
  1. ZECUITY [Suspect]
     Active Substance: SUMATRIPTAN SUCCINATE
     Route: 062
     Dates: start: 20160606, end: 20160606
  2. ZECUITY [Suspect]
     Active Substance: SUMATRIPTAN SUCCINATE
     Route: 062
     Dates: start: 201605, end: 201605

REACTIONS (5)
  - Application site urticaria [Recovered/Resolved]
  - Sunburn [Recovered/Resolved]
  - Application site oedema [Recovered/Resolved]
  - Application site erythema [Recovered/Resolved]
  - Device battery issue [Unknown]

NARRATIVE: CASE EVENT DATE: 2016
